FAERS Safety Report 8988782 (Version 1)
Quarter: 2012Q4

REPORT INFORMATION
  Report Type: Report from Study
  Country: JP (occurrence: JP)
  Receive Date: 20121228
  Receipt Date: 20121228
  Transmission Date: 20130627
  Serious: Yes (Death, Other)
  Sender: FDA-Public Use
  Company Number: PHHY2009JP09606

PATIENT
  Age: 46 Year
  Sex: Female

DRUGS (8)
  1. ICL670A [Suspect]
     Indication: IRON OVERLOAD
     Dosage: 875mg daily
     Route: 048
     Dates: start: 20080914, end: 20080921
  2. ICL670A [Suspect]
     Indication: ACUTE MYELOID LEUKAEMIA
  3. ARBEKACIN SULFATE [Concomitant]
     Dosage: 200mg
     Route: 042
     Dates: start: 20080912, end: 20080921
  4. MINOPHAGEN C [Concomitant]
     Dosage: 3DF
     Route: 042
     Dates: start: 20080911, end: 20080921
  5. SOLU-CORTEF [Concomitant]
     Dosage: 200mg
     Route: 042
     Dates: start: 20080822, end: 20080921
  6. MEROPEN [Concomitant]
     Dosage: 1.0g
     Route: 042
     Dates: start: 20080919, end: 20080921
  7. TAKEPRON [Concomitant]
     Dosage: 30mg
     Route: 048
     Dates: start: 20080819, end: 20080921
  8. NORVASC [Concomitant]
     Dosage: 2.5mg
     Route: 048
     Dates: start: 20080907, end: 20080921

REACTIONS (8)
  - Cerebral infarction [Fatal]
  - Cerebral artery embolism [Fatal]
  - Hemiplegia [Fatal]
  - Altered state of consciousness [Fatal]
  - Pyrexia [Fatal]
  - Sepsis [None]
  - General physical health deterioration [None]
  - Blood urea increased [Not Recovered/Not Resolved]
